FAERS Safety Report 6247588-6 (Version None)
Quarter: 2009Q2

REPORT INFORMATION
  Report Type: 
  Country: None (occurrence: None)
  Receive Date: 20090626
  Receipt Date: 20090623
  Transmission Date: 20091009
  Serious: Yes (Life-Threatening, Other)
  Sender: FDA-Public Use
  Company Number: US-MERCK-0906USA03433

PATIENT
  Age: 20 Year
  Sex: Female

DRUGS (6)
  1. SINGULAIR [Suspect]
     Indication: ASTHMA
     Route: 048
     Dates: start: 20051001
  2. FEXOFENADINE HYDROCHLORIDE [Concomitant]
     Route: 065
  3. PROTONIX [Concomitant]
     Route: 065
  4. SYMBICORT [Concomitant]
     Route: 065
  5. LEXAPRO [Concomitant]
     Route: 065
  6. ORTHO TRI-CYCLEN LO [Concomitant]
     Route: 065

REACTIONS (2)
  - SUICIDAL BEHAVIOUR [None]
  - SUICIDAL IDEATION [None]
